FAERS Safety Report 10538764 (Version 11)
Quarter: 2015Q4

REPORT INFORMATION
  Report Type: Spontaneous
  Country: FR (occurrence: FR)
  Receive Date: 20141023
  Receipt Date: 20151123
  Transmission Date: 20160304
  Serious: Yes (Other)
  Sender: FDA-Public Use
  Company Number: FR-GLAXOSMITHKLINE-B1025842A

PATIENT
  Age: 66 Year
  Sex: Female

DRUGS (23)
  1. RIVOTRIL [Concomitant]
     Active Substance: CLONAZEPAM
     Route: 065
  2. HYZAAR [Concomitant]
     Active Substance: HYDROCHLOROTHIAZIDE\LOSARTAN POTASSIUM
     Indication: HYPERTENSION
     Route: 065
     Dates: start: 20060206
  3. INIPOMP [Concomitant]
     Active Substance: PANTOPRAZOLE SODIUM
     Indication: HIATUS HERNIA
     Route: 065
     Dates: start: 20051010
  4. DIALGIREX [Concomitant]
     Active Substance: ACETAMINOPHEN\PROPOXYPHENE HYDROCHLORIDE
     Route: 065
  5. VEINOBIASE [Concomitant]
     Route: 065
  6. LEVOTHYROX [Concomitant]
     Active Substance: LEVOTHYROXINE
     Indication: THYROID DISORDER
  7. PROZAC [Concomitant]
     Active Substance: FLUOXETINE HYDROCHLORIDE
     Indication: DEPRESSION
     Route: 065
     Dates: start: 20041021
  8. TANAKAN [Concomitant]
     Active Substance: GINKGO
     Route: 065
  9. TAHOR [Concomitant]
     Active Substance: ATORVASTATIN CALCIUM
     Indication: HYPERCHOLESTEROLAEMIA
     Route: 065
     Dates: start: 20041021
  10. MOTILIUM [Concomitant]
     Active Substance: DOMPERIDONE
     Indication: PARKINSON^S DISEASE
  11. MOTILIUM [Concomitant]
     Active Substance: DOMPERIDONE
     Indication: HIATUS HERNIA
     Route: 065
     Dates: start: 20041014
  12. KARDEGIC [Concomitant]
     Active Substance: ASPIRIN LYSINE
     Indication: ARTERITIS
     Route: 065
     Dates: start: 20041021
  13. STILNOX [Concomitant]
     Active Substance: ZOLPIDEM TARTRATE
     Indication: DEPRESSION
     Route: 065
     Dates: start: 20041021
  14. MODOPAR [Concomitant]
     Active Substance: BENSERAZIDE HYDROCHLORIDE\LEVODOPA
     Indication: PARKINSON^S DISEASE
     Dosage: 375 MG, QD
     Route: 065
     Dates: start: 200601
  15. DIAMICRON [Concomitant]
     Active Substance: GLICLAZIDE
     Indication: DIABETES MELLITUS
  16. REQUIP [Suspect]
     Active Substance: ROPINIROLE HYDROCHLORIDE
     Indication: PARKINSON^S DISEASE
     Route: 065
     Dates: start: 200312, end: 200608
  17. COZAAR [Concomitant]
     Active Substance: LOSARTAN POTASSIUM
     Indication: HYPERTENSION
     Route: 065
     Dates: start: 20041021
  18. DEROXAT [Concomitant]
     Active Substance: PAROXETINE HYDROCHLORIDE
     Route: 065
  19. STALEVO [Concomitant]
     Active Substance: CARBIDOPA\ENTACAPONE\LEVODOPA
     Indication: PARKINSON^S DISEASE
     Route: 065
  20. REQUIP LP [Suspect]
     Active Substance: ROPINIROLE HYDROCHLORIDE
     Indication: PARKINSON^S DISEASE
     Dosage: UNK, Z
     Route: 065
     Dates: start: 200804, end: 201005
  21. SIFROL [Suspect]
     Active Substance: PRAMIPEXOLE
     Indication: PARKINSON^S DISEASE
     Route: 065
     Dates: start: 200608, end: 201112
  22. SELEGILINE [Concomitant]
     Active Substance: SELEGILINE
     Indication: PARKINSON^S DISEASE
     Route: 065
     Dates: start: 20041021
  23. MOPRAL [Concomitant]
     Active Substance: OMEPRAZOLE SODIUM
     Indication: HIATUS HERNIA
     Route: 065
     Dates: start: 20041021

REACTIONS (31)
  - Sudden onset of sleep [Unknown]
  - Compulsive shopping [Recovered/Resolved]
  - Insomnia [Unknown]
  - Pain [Unknown]
  - Hallucination, visual [Recovered/Resolved]
  - Economic problem [Unknown]
  - Cognitive disorder [Unknown]
  - Sleep apnoea syndrome [Unknown]
  - Visual acuity reduced [Unknown]
  - Malaise [Unknown]
  - Orthostatic hypotension [Unknown]
  - Abnormal behaviour [Unknown]
  - Fatigue [Recovered/Resolved]
  - Parkinsonism [Unknown]
  - Drug ineffective [Unknown]
  - Abnormal dreams [Unknown]
  - Dopamine dysregulation syndrome [Unknown]
  - Tremor [Unknown]
  - Psychomotor hyperactivity [Recovered/Resolved]
  - Hallucination, visual [Recovered/Resolved]
  - Disturbance in attention [Recovered/Resolved]
  - Weight increased [Unknown]
  - Memory impairment [Unknown]
  - Orthostatic hypertension [Recovered/Resolved]
  - Mania [Recovered/Resolved]
  - Somnolence [Recovered/Resolved]
  - Impulse-control disorder [Recovered/Resolved]
  - Hallucination, visual [Recovered/Resolved]
  - Psychotic behaviour [Unknown]
  - Nausea [Unknown]
  - Hypotension [Unknown]

NARRATIVE: CASE EVENT DATE: 2004
